FAERS Safety Report 24995152 (Version 1)
Quarter: 2025Q1

REPORT INFORMATION
  Report Type: Other
  Country: BE (occurrence: BE)
  Receive Date: 20250221
  Receipt Date: 20250221
  Transmission Date: 20250409
  Serious: Yes (Hospitalization, Other)
  Sender: ASPEN
  Company Number: BE-MLMSERVICE-20250206-PI397536-00117-1

PATIENT

DRUGS (2)
  1. DEXAMETHASONE [Suspect]
     Active Substance: DEXAMETHASONE
     Indication: Plasma cell myeloma
     Route: 065
     Dates: start: 202209, end: 202210
  2. CARFILZOMIB [Suspect]
     Active Substance: CARFILZOMIB
     Indication: Plasma cell myeloma
     Route: 065
     Dates: start: 202209, end: 202210

REACTIONS (5)
  - Hypogammaglobulinaemia [Unknown]
  - Bronchopulmonary aspergillosis [Recovered/Resolved]
  - Brain abscess [Recovered/Resolved]
  - Cerebral nocardiosis [Recovered/Resolved]
  - Candida sepsis [Recovered/Resolved]

NARRATIVE: CASE EVENT DATE: 20220901
